FAERS Safety Report 5080514-4 (Version None)
Quarter: 2006Q3

REPORT INFORMATION
  Report Type: 
  Country: None (occurrence: None)
  Receive Date: 20060809
  Receipt Date: 20060724
  Transmission Date: 20061208
  Serious: Yes (Hospitalization, Other)
  Sender: FDA-Public Use
  Company Number: 2006AL001965

PATIENT
  Age: 88 Year
  Sex: Female

DRUGS (8)
  1. CITALOPRAM HYDROBROMIDE [Suspect]
     Indication: DEPRESSION
     Dosage: 10 MG; QD; PO
     Route: 048
     Dates: start: 20051219, end: 20060126
  2. METOCLOPRAMIDE [Suspect]
     Indication: DEPRESSION
     Dosage: 10 MG, TID; PO
     Route: 048
  3. BENDROFLUMETHIAZIDE [Concomitant]
  4. PLANTAGO OVATA [Concomitant]
  5. HYPROMELLOSE [Concomitant]
  6. CYANOCOBALAMIN [Concomitant]
  7. ALVERINE [Concomitant]
  8. ALBUTEROL SPIROS [Concomitant]

REACTIONS (2)
  - HYPOKALAEMIA [None]
  - HYPONATRAEMIA [None]
